FAERS Safety Report 6721243-8 (Version None)
Quarter: 2010Q2

REPORT INFORMATION
  Report Type: 
  Country: None (occurrence: None)
  Receive Date: 20100512
  Receipt Date: 20100503
  Transmission Date: 20101027
  Serious: Yes (Hospitalization)
  Sender: FDA-Public Use
  Company Number: US-ASTRAZENECA-2010SE07298

PATIENT
  Age: 42 Year
  Sex: Female

DRUGS (3)
  1. SEROQUEL XR [Suspect]
     Indication: PSYCHOTIC DISORDER
     Route: 048
  2. SEROQUEL XR [Suspect]
     Dosage: TOOK 150 OF THE 200 MG PILLS.
     Route: 048
  3. SEROQUEL XR [Suspect]
     Route: 048
     Dates: start: 20090721, end: 20091004

REACTIONS (3)
  - DRUG DISPENSING ERROR [None]
  - OVERDOSE [None]
  - SUICIDE ATTEMPT [None]
